FAERS Safety Report 7148469-6 (Version None)
Quarter: 2010Q4

REPORT INFORMATION
  Report Type: 
  Country: None (occurrence: None)
  Receive Date: 20101209
  Receipt Date: 20101201
  Transmission Date: 20110411
  Serious: Yes (Other)
  Sender: FDA-Public Use
  Company Number: PHHY2010US70480

PATIENT
  Sex: Female

DRUGS (24)
  1. EXTAVIA [Suspect]
     Indication: MULTIPLE SCLEROSIS
     Dosage: 0.25 MG, QOD
     Route: 058
     Dates: start: 20100716
  2. TYLENOL (CAPLET) [Concomitant]
  3. TOPRAL [Concomitant]
     Dosage: UNK
  4. BACLOFEN [Concomitant]
     Dosage: UNK
  5. DEPAKOTE [Concomitant]
     Dosage: UNK
  6. IMITREX [Concomitant]
     Dosage: UNK
  7. LYRICA [Concomitant]
     Dosage: UNK
  8. ADVAIR [Concomitant]
     Dosage: UNK
  9. ALBUTEROL [Concomitant]
     Dosage: UNK
  10. ZOPINOX [Concomitant]
     Dosage: UNK
  11. LASIX [Concomitant]
     Dosage: UNK
  12. SINGULAIR [Concomitant]
     Dosage: UNK
  13. BUSPAR [Concomitant]
     Dosage: UNK
  14. LEVOXYL [Concomitant]
     Dosage: UNK
  15. VITAMIN B [Concomitant]
     Dosage: UNK
  16. METOPROLOL [Concomitant]
     Dosage: UNK
  17. TRICOR [Concomitant]
     Dosage: UNK
  18. PROTONIX [Concomitant]
     Dosage: UNK
  19. NORVASC [Concomitant]
     Dosage: UNK
  20. LISINOPRIL [Concomitant]
     Dosage: UNK
  21. ASPIRIN [Concomitant]
     Dosage: UNK
  22. CLARITIN [Concomitant]
     Dosage: UNK
  23. ABILIFY [Concomitant]
     Dosage: UNK
  24. NOVOLOG [Concomitant]
     Dosage: UNK

REACTIONS (9)
  - HYPOAESTHESIA [None]
  - MALAISE [None]
  - NAUSEA [None]
  - NERVE INJURY [None]
  - PAIN IN EXTREMITY [None]
  - SPINAL CORD DISORDER [None]
  - STRESS [None]
  - VERTIGO [None]
  - VOMITING [None]
